FAERS Safety Report 15311186 (Version 1)
Quarter: 2018Q3

REPORT INFORMATION
  Report Type: Spontaneous
  Country: US (occurrence: US)
  Receive Date: 20180814
  Receipt Date: 20180814
  Transmission Date: 20181010
  Serious: Yes (Other)
  Sender: FDA-Public Use
  Company Number: None

PATIENT
  Age: 33 Year
  Sex: Female
  Weight: 59.4 kg

DRUGS (2)
  1. DITROPAN XL [Concomitant]
     Active Substance: OXYBUTYNIN CHLORIDE
  2. OXYCODONE/ACETAMINOPHEN [Suspect]
     Active Substance: ACETAMINOPHEN\OXYCODONE HYDROCHLORIDE
     Indication: RENAL PAIN
     Dosage: ?          QUANTITY:20 TABLET(S);?
     Route: 048
     Dates: start: 20180808, end: 20180812

REACTIONS (8)
  - Oropharyngeal pain [None]
  - Malaise [None]
  - Headache [None]
  - Product quality issue [None]
  - Anxiety [None]
  - Hyperhidrosis [None]
  - Inadequate analgesia [None]
  - Throat irritation [None]

NARRATIVE: CASE EVENT DATE: 20180808
